FAERS Safety Report 5202656-2 (Version None)
Quarter: 2006Q4

REPORT INFORMATION
  Report Type: 
  Country: None (occurrence: None)
  Receive Date: 20061018
  Receipt Date: 20050307
  Transmission Date: 20070319
  Serious: Yes (Other)
  Sender: FDA-Public Use
  Company Number: PHEH2005US02876

PATIENT
  Sex: Male

DRUGS (3)
  1. ZOMETA [Suspect]
     Indication: MULTIPLE MYELOMA
  2. STEROIDS NOS (NO INGREDIENTS/SUBSTANCES) [Concomitant]
  3. VELCADE [Concomitant]

REACTIONS (2)
  - IMPAIRED HEALING [None]
  - JAW DISORDER [None]
